FAERS Safety Report 4377966-1 (Version None)
Quarter: 2004Q2

REPORT INFORMATION
  Report Type: 
  Country: None (occurrence: None)
  Receive Date: 20040609
  Receipt Date: 20040602
  Transmission Date: 20050107
  Serious: Yes (Hospitalization)
  Sender: FDA-Public Use
  Company Number: 2004-06-0093

PATIENT
  Age: 62 Year
  Sex: Female
  Weight: 58 kg

DRUGS (2)
  1. REBETOL [Suspect]
     Indication: HEPATITIS C
     Dosage: 600 MG ORAL
     Route: 048
     Dates: start: 20040224, end: 20040326
  2. INTRON A [Suspect]
     Indication: HEPATITIS C
     Dosage: 10 MU INTRAMUSCULAR
     Route: 030
     Dates: start: 20040224, end: 20040326

REACTIONS (9)
  - BUNDLE BRANCH BLOCK LEFT [None]
  - CARDIAC FAILURE [None]
  - ELECTROCARDIOGRAM QT PROLONGED [None]
  - ELECTROCARDIOGRAM T WAVE INVERSION [None]
  - INTERSTITIAL LUNG DISEASE [None]
  - PLEURAL EFFUSION [None]
  - PULMONARY CONGESTION [None]
  - PYREXIA [None]
  - VENTRICULAR HYPOKINESIA [None]
